FAERS Safety Report 8498490-0 (Version None)
Quarter: 2012Q3

REPORT INFORMATION
  Report Type: 
  Country: None (occurrence: None)
  Receive Date: 20120709
  Receipt Date: 20120625
  Transmission Date: 20120928
  Serious: Yes (Other)
  Sender: FDA-Public Use
  Company Number: US-ROCHE-1081596

PATIENT
  Age: 40 Year
  Sex: Female

DRUGS (6)
  1. PACLITAXEL [Concomitant]
     Indication: BREAST CANCER
  2. TRASTUZUMAB [Suspect]
     Indication: BREAST CANCER
  3. LAPATINIB [Concomitant]
     Indication: BREAST CANCER
  4. IXABEPILONE [Concomitant]
     Indication: BREAST CANCER
  5. CAPECITABINE [Suspect]
     Indication: BREAST CANCER
  6. ANTHRACYCLINE [Concomitant]
     Indication: BREAST CANCER

REACTIONS (2)
  - METASTASES TO CENTRAL NERVOUS SYSTEM [None]
  - RECURRENT CANCER [None]
